FAERS Safety Report 14893130 (Version 1)
Quarter: 2018Q2

REPORT INFORMATION
  Report Type: Spontaneous
  Country: US (occurrence: US)
  Receive Date: 20180514
  Receipt Date: 20180514
  Transmission Date: 20180711
  Serious: Yes (Hospitalization)
  Sender: FDA-Public Use
  Company Number: US-PERNIX THERAPEUTICS-US-2018PER001631

PATIENT

DRUGS (5)
  1. LYRICA [Concomitant]
     Active Substance: PREGABALIN
     Indication: MIGRAINE
     Dosage: UNK
  2. METOPROLOL. [Concomitant]
     Active Substance: METOPROLOL
     Indication: PRODUCT USED FOR UNKNOWN INDICATION
     Dosage: UNK
  3. CYMBALTA [Concomitant]
     Active Substance: DULOXETINE HYDROCHLORIDE
     Indication: MIGRAINE
     Dosage: UNK
  4. SILENOR [Suspect]
     Active Substance: DOXEPIN HYDROCHLORIDE
     Dosage: 6 MG, QD
     Route: 048
     Dates: start: 201712
  5. SILENOR [Suspect]
     Active Substance: DOXEPIN HYDROCHLORIDE
     Indication: INSOMNIA
     Dosage: 6 MG, QD
     Route: 048
     Dates: start: 20171205, end: 201712

REACTIONS (2)
  - Pelvic fracture [Recovered/Resolved]
  - Fall [Recovered/Resolved]

NARRATIVE: CASE EVENT DATE: 201712
